FAERS Safety Report 9300493 (Version 2)
Quarter: 2013Q3

REPORT INFORMATION
  Report Type: Report from Study
  Country: US (occurrence: US)
  Receive Date: 20130521
  Receipt Date: 20130719
  Transmission Date: 20140515
  Serious: Yes (Hospitalization)
  Sender: FDA-Public Use
  Company Number: US-JNJFOC-20130509492

PATIENT
  Age: 16 Year
  Sex: Female
  Weight: 52.8 kg

DRUGS (10)
  1. REMICADE [Suspect]
     Indication: CROHN^S DISEASE
     Route: 042
     Dates: start: 20100616
  2. PROBIOTICS [Concomitant]
     Route: 065
  3. LEXAPRO [Concomitant]
     Route: 065
  4. MICROGESTIN FE [Concomitant]
     Route: 065
  5. AMITRIPTYLINE [Concomitant]
     Route: 065
  6. OMEPRAZOLE [Concomitant]
     Route: 065
  7. MAGNESIUM SULFATE [Concomitant]
     Route: 065
  8. MIRALAX [Concomitant]
     Route: 065
  9. MEDROL [Concomitant]
     Route: 065
  10. BACTRIM [Concomitant]
     Route: 065

REACTIONS (1)
  - Crohn^s disease [Recovered/Resolved]
